FAERS Safety Report 21183329 (Version 1)
Quarter: 2022Q3

REPORT INFORMATION
  Report Type: Spontaneous
  Country: US (occurrence: US)
  Receive Date: 20220808
  Receipt Date: 20220808
  Transmission Date: 20221027
  Serious: No
  Sender: FDA-Public Use
  Company Number: US-BAUSCH-BL-2022-019545

PATIENT
  Age: 76 Year
  Sex: Female

DRUGS (9)
  1. XIFAXAN [Suspect]
     Active Substance: RIFAXIMIN
     Indication: Gastrointestinal disorder
     Route: 065
  2. XIFAXAN [Suspect]
     Active Substance: RIFAXIMIN
     Route: 048
     Dates: start: 20220803
  3. ASPIRIN [Concomitant]
     Active Substance: ASPIRIN
     Indication: Product used for unknown indication
  4. VITAMIN B12 [Concomitant]
     Active Substance: CYANOCOBALAMIN
     Indication: Product used for unknown indication
     Dosage: B12 SHOT
  5. PANTOPRAZOLE [Concomitant]
     Active Substance: PANTOPRAZOLE
     Indication: Product used for unknown indication
  6. TRAMADOL [Concomitant]
     Active Substance: TRAMADOL
     Indication: Product used for unknown indication
  7. SINGULAIR [Concomitant]
     Active Substance: MONTELUKAST SODIUM
     Indication: Product used for unknown indication
  8. KETOTIFEN [Concomitant]
     Active Substance: KETOTIFEN
     Indication: Product used for unknown indication
     Dosage: KETOTIFEN COMPOUNDED
  9. CHLOR-TRIMETON [Concomitant]
     Active Substance: CHLORPHENIRAMINE MALEATE
     Indication: Product used for unknown indication

REACTIONS (4)
  - Periorbital swelling [Unknown]
  - Nasal congestion [Unknown]
  - Abdominal pain upper [Unknown]
  - Headache [Unknown]

NARRATIVE: CASE EVENT DATE: 20220801
